FAERS Safety Report 15035925 (Version 1)
Quarter: 2018Q2

REPORT INFORMATION
  Report Type: Spontaneous
  Country: CA (occurrence: CA)
  Receive Date: 20180620
  Receipt Date: 20180620
  Transmission Date: 20180711
  Serious: Yes (Other)
  Sender: FDA-Public Use
  Company Number: CA-JNJFOC-20180611136

PATIENT
  Age: 60 Year
  Sex: Male
  Weight: 104 kg

DRUGS (5)
  1. MOTRIN [Suspect]
     Active Substance: IBUPROFEN
     Indication: ARTHRALGIA
     Dosage: FOR 3 DAYS
     Route: 048
  2. NAPROXEN LIQUID GEL CAPSULES [Suspect]
     Active Substance: NAPROXEN
     Indication: CYSTITIS
     Dosage: FOR 4 DAYS
     Route: 048
  3. DELATESTRYL [Suspect]
     Active Substance: TESTOSTERONE ENANTHATE
     Indication: TRANSGENDER OPERATION
     Dosage: FOR 20 YEARS
     Route: 042
  4. MOTRIN [Suspect]
     Active Substance: IBUPROFEN
     Indication: CYSTITIS
     Dosage: FOR 3 DAYS
     Route: 048
  5. NAPROXEN LIQUID GEL CAPSULES [Suspect]
     Active Substance: NAPROXEN
     Indication: ARTHRALGIA
     Dosage: FOR 4 DAYS
     Route: 048

REACTIONS (1)
  - Lower gastrointestinal haemorrhage [Recovered/Resolved]
